FAERS Safety Report 13943140 (Version 1)
Quarter: 2017Q3

REPORT INFORMATION
  Report Type: Spontaneous
  Country: NZ (occurrence: NZ)
  Receive Date: 20170907
  Receipt Date: 20170907
  Transmission Date: 20171128
  Serious: Yes (Other)
  Sender: FDA-Public Use
  Company Number: NZ-BAUSCH-BL-2017-025632

PATIENT
  Sex: Male

DRUGS (2)
  1. HYLOFRESH [Concomitant]
     Indication: PRODUCT USED FOR UNKNOWN INDICATION
  2. LOCOID [Suspect]
     Active Substance: HYDROCORTISONE BUTYRATE
     Indication: PRODUCT USED FOR UNKNOWN INDICATION
     Route: 047

REACTIONS (4)
  - Eye burns [Unknown]
  - Accidental exposure to product [Recovering/Resolving]
  - Visual impairment [Unknown]
  - Corneal oedema [Unknown]
